FAERS Safety Report 6607128-6 (Version None)
Quarter: 2010Q1

REPORT INFORMATION
  Report Type: 
  Country: None (occurrence: None)
  Receive Date: 20100212
  Receipt Date: 20091021
  Transmission Date: 20100710
  Serious: Yes (Other)
  Sender: FDA-Public Use
  Company Number: 1000009614

PATIENT
  Age: 39 Year
  Sex: Female

DRUGS (10)
  1. SAVELLA [Suspect]
     Indication: FIBROMYALGIA
     Dosage: SEE IMAGE
     Route: 048
     Dates: start: 20090917, end: 20090917
  2. SAVELLA [Suspect]
     Indication: FIBROMYALGIA
     Dosage: SEE IMAGE
     Route: 048
     Dates: start: 20090919, end: 20090919
  3. SAVELLA [Suspect]
     Indication: FIBROMYALGIA
     Dosage: SEE IMAGE
     Route: 048
     Dates: start: 20090920, end: 20090923
  4. SAVELLA [Suspect]
     Indication: FIBROMYALGIA
     Dosage: 100 MG (50 MG,2 IN 1 D),ORAL
     Route: 048
     Dates: start: 20090924, end: 20091008
  5. AMBIEN (5 MILLIGRAM) [Concomitant]
  6. METHADONE (2.5 MILLIGRAM, TABLETS) [Concomitant]
  7. LEVOXYL (88 MICROGRAM) [Concomitant]
  8. PROPRANOLOL (40 MILLIGRAM, TABLETS) [Concomitant]
  9. YAZ [Concomitant]
  10. MULTI-VITAMIN [Concomitant]

REACTIONS (6)
  - ANXIETY [None]
  - CRYING [None]
  - EATING DISORDER [None]
  - INSOMNIA [None]
  - SUICIDAL IDEATION [None]
  - WEIGHT DECREASED [None]
